FAERS Safety Report 8530338 (Version 3)
Quarter: 2016Q4

REPORT INFORMATION
  Report Type: Spontaneous
  Country: BR (occurrence: BR)
  Receive Date: 20120425
  Receipt Date: 20161114
  Transmission Date: 20170207
  Serious: Yes (Other)
  Sender: FDA-Public Use
  Company Number: BR-PFIZER INC-2012099528

PATIENT
  Age: 82 Year
  Sex: Female
  Weight: 53 kg

DRUGS (8)
  1. NEBILET [Suspect]
     Active Substance: NEBIVOLOL
     Indication: BLOOD PRESSURE MEASUREMENT
     Dosage: UNK
     Route: 048
  2. AMIODARONE [Concomitant]
     Active Substance: AMIODARONE
     Indication: CARDIAC FIBRILLATION
     Dosage: 1 DF, DAILY
     Route: 048
  3. SIMVASTATIN. [Concomitant]
     Active Substance: SIMVASTATIN
     Indication: BLOOD CHOLESTEROL
     Dosage: 20 MG, DAILY
     Route: 048
  4. FRONTAL [Suspect]
     Active Substance: ALPRAZOLAM
     Indication: HEADACHE
  5. FRONTAL [Suspect]
     Active Substance: ALPRAZOLAM
     Indication: INSOMNIA
     Dosage: UNK
     Route: 048
     Dates: start: 201202
  6. FRONTAL [Suspect]
     Active Substance: ALPRAZOLAM
     Indication: NERVOUSNESS
     Dosage: 1 MG, 1X/DAY
     Route: 048
     Dates: start: 2014
  7. RIVOTRIL [Suspect]
     Active Substance: CLONAZEPAM
     Dosage: 6 GTT, DAILY
  8. ASPIRINA PREVENT [Concomitant]
     Active Substance: ASPIRIN
     Dosage: UNK
     Route: 048

REACTIONS (9)
  - Weight decreased [Unknown]
  - Cardiac fibrillation [Unknown]
  - Sedation [Unknown]
  - Feeling abnormal [Unknown]
  - Nervousness [Unknown]
  - Decreased appetite [Unknown]
  - Hypertension [Unknown]
  - Constipation [Unknown]
  - Intentional product misuse [Unknown]

NARRATIVE: CASE EVENT DATE: 201203
